FAERS Safety Report 13927883 (Version 3)
Quarter: 2017Q3

REPORT INFORMATION
  Report Type: Report from Study
  Country: US (occurrence: US)
  Receive Date: 20170901
  Receipt Date: 20170925
  Transmission Date: 20171127
  Serious: Yes (Hospitalization, Other)
  Sender: FDA-Public Use
  Company Number: US-GILEAD-2017-0291444

PATIENT
  Age: 23 Year
  Sex: Female

DRUGS (3)
  1. REMODULIN [Suspect]
     Active Substance: TREPROSTINIL
     Indication: PULMONARY HYPERTENSION
     Dosage: 125.5 NG, Q1MINUTE
     Route: 065
     Dates: start: 20150115
  2. ADCIRCA [Concomitant]
     Active Substance: TADALAFIL
     Dates: start: 20170128
  3. AMBRISENTAN [Suspect]
     Active Substance: AMBRISENTAN
     Indication: PULMONARY HYPERTENSION
     Dosage: 10 MG, QD
     Route: 065
     Dates: start: 20120817, end: 20170622

REACTIONS (2)
  - Maternal exposure during pregnancy [Unknown]
  - Foetal death [Recovered/Resolved]
